FAERS Safety Report 7698697-6 (Version None)
Quarter: 2011Q3

REPORT INFORMATION
  Report Type: 
  Country: None (occurrence: None)
  Receive Date: 20110819
  Receipt Date: 20110811
  Transmission Date: 20111222
  Serious: Yes (Hospitalization, Other)
  Sender: FDA-Public Use
  Company Number: US-BAYER-201035427NA

PATIENT
  Age: 39 Year
  Sex: Female

DRUGS (7)
  1. PROZAC [Concomitant]
     Dosage: UNK
     Dates: start: 20020101
  2. PREDNISONE [Concomitant]
  3. KLONOPIN [Concomitant]
  4. VENLAFAXINE [Concomitant]
  5. NITROFURANTOIN [Concomitant]
  6. YAZ [Suspect]
     Indication: PREMENSTRUAL SYNDROME
     Route: 048
     Dates: start: 20080501, end: 20080901
  7. CIPROFLOXACIN [Concomitant]

REACTIONS (4)
  - PULMONARY FIBROSIS [None]
  - PULMONARY EMBOLISM [None]
  - MUSCULOSKELETAL PAIN [None]
  - RESPIRATION ABNORMAL [None]
